FAERS Safety Report 25517655 (Version 2)
Quarter: 2025Q3

REPORT INFORMATION
  Report Type: Spontaneous
  Country: GB (occurrence: GB)
  Receive Date: 20250704
  Receipt Date: 20250809
  Transmission Date: 20251020
  Serious: Yes (Hospitalization, Other)
  Sender: ALEXION PHARMACEUTICALS
  Company Number: GB-ASTRAZENECA-202506GLO024173GB

PATIENT
  Age: 60 Year

DRUGS (8)
  1. OMEPRAZOLE [Suspect]
     Active Substance: OMEPRAZOLE
     Indication: Dyspepsia
     Route: 065
  2. CITALOPRAM [Concomitant]
     Active Substance: CITALOPRAM
     Route: 065
  3. CYANOCOBALAMIN [Concomitant]
     Active Substance: CYANOCOBALAMIN
     Route: 065
  4. CHOLECALCIFEROL [Concomitant]
     Active Substance: CHOLECALCIFEROL
     Route: 065
  5. ERGOCALCIFEROL [Concomitant]
     Active Substance: ERGOCALCIFEROL
     Route: 065
  6. LOPERAMIDE [Concomitant]
     Active Substance: LOPERAMIDE
     Route: 065
  7. PROCHLORPERAZINE [Concomitant]
     Active Substance: PROCHLORPERAZINE
     Route: 065
  8. SUMATRIPTAN [Concomitant]
     Active Substance: SUMATRIPTAN
     Route: 065

REACTIONS (4)
  - Hypomagnesaemia [Unknown]
  - Hypocalcaemia [Not Recovered/Not Resolved]
  - Diarrhoea [Unknown]
  - Electrocardiogram QT prolonged [Unknown]

NARRATIVE: CASE EVENT DATE: 20250210
